FAERS Safety Report 9198213 (Version 3)
Quarter: 2013Q3

REPORT INFORMATION
  Report Type: Spontaneous
  Country: US (occurrence: US)
  Receive Date: 20130329
  Receipt Date: 20130702
  Transmission Date: 20140515
  Serious: Yes (Hospitalization)
  Sender: FDA-Public Use
  Company Number: US-BIOGENIDEC-2013BI027647

PATIENT
  Age: 54 Year
  Sex: Female

DRUGS (3)
  1. AVONEX [Suspect]
     Indication: MULTIPLE SCLEROSIS
     Route: 030
     Dates: start: 20010523
  2. AVONEX [Suspect]
     Indication: MULTIPLE SCLEROSIS
     Route: 030
     Dates: end: 201302
  3. AVONEX [Suspect]
     Indication: MULTIPLE SCLEROSIS
     Route: 030
     Dates: start: 201302

REACTIONS (8)
  - Portal vein thrombosis [Unknown]
  - Intestinal resection [Unknown]
  - Abdominal pain [Recovered/Resolved]
  - Thrombosis [Unknown]
  - Gastric ulcer surgery [Unknown]
  - Large intestinal obstruction [Recovered/Resolved]
  - Volvulus [Unknown]
  - Small intestinal obstruction [Recovered/Resolved]
